FAERS Safety Report 16415993 (Version 1)
Quarter: 2019Q3

REPORT INFORMATION
  Report Type: Spontaneous
  Country: US (occurrence: US)
  Receive Date: 20190610
  Receipt Date: 20190610
  Transmission Date: 20191004
  Serious: Yes (Hospitalization)
  Sender: FDA-Public Use
  Company Number: None

PATIENT
  Age: 27 Year
  Sex: Female
  Weight: 54.43 kg

DRUGS (1)
  1. MIRENA [Suspect]
     Active Substance: LEVONORGESTREL

REACTIONS (10)
  - Device dislocation [None]
  - Abortion spontaneous [None]
  - Apathy [None]
  - Depressed mood [None]
  - Uterine dilation and curettage [None]
  - Complication of device removal [None]
  - Headache [None]
  - Menorrhagia [None]
  - Dysmenorrhoea [None]
  - Pregnancy with contraceptive device [None]
